FAERS Safety Report 15462058 (Version 2)
Quarter: 2021Q1

REPORT INFORMATION
  Report Type: Spontaneous
  Country: US (occurrence: US)
  Receive Date: 20181004
  Receipt Date: 20210319
  Transmission Date: 20210419
  Serious: Yes (Other)
  Sender: FDA-Public Use
  Company Number: US-TAKEDA-2018TUS028433

PATIENT
  Sex: Male

DRUGS (1)
  1. ENTYVIO [Suspect]
     Active Substance: VEDOLIZUMAB
     Indication: COLITIS ULCERATIVE
     Dosage: UNK
     Route: 042
     Dates: start: 201602

REACTIONS (5)
  - Feeling abnormal [Unknown]
  - Somnolence [Recovered/Resolved]
  - Therapeutic product effect delayed [Unknown]
  - Fatigue [Unknown]
  - Colitis ulcerative [Unknown]
